FAERS Safety Report 19761809 (Version 1)
Quarter: 2021Q3

REPORT INFORMATION
  Report Type: Spontaneous
  Country: US (occurrence: US)
  Receive Date: 20210828
  Receipt Date: 20210828
  Transmission Date: 20211014
  Serious: No
  Sender: FDA-Public Use
  Company Number: None

PATIENT
  Age: 70 Year
  Sex: Female
  Weight: 74.25 kg

DRUGS (20)
  1. CREATINE [Concomitant]
     Active Substance: CREATINE
  2. ASPIRIN. [Concomitant]
     Active Substance: ASPIRIN
  3. RHODIOLA [Concomitant]
     Active Substance: HERBALS
  4. PROTEIN SHAKES [Concomitant]
  5. SUPER GREENS [Concomitant]
     Active Substance: DIETARY SUPPLEMENT
  6. OLIVE OIL [Concomitant]
     Active Substance: OLIVE OIL
  7. ADEMETIONINE. [Concomitant]
     Active Substance: ADEMETIONINE
  8. DILTIAZEM HCL EXTENDED?RELEASE CAPSULES [Suspect]
     Active Substance: DILTIAZEM HYDROCHLORIDE
     Indication: HYPERTENSION
     Dosage: ?          QUANTITY:1 CAPSULE(S);?
     Route: 048
  9. JIAOGULAN [Concomitant]
  10. ACAI. [Concomitant]
     Active Substance: ACAI
  11. COLLAGEN [Concomitant]
     Active Substance: COLLAGEN
  12. MUSHROOM COMPLEX [Concomitant]
     Active Substance: HERBALS
  13. COLLOIDAL SILVER AND GOLD [Concomitant]
  14. FO?TI [Concomitant]
  15. NUTRITIONAL YEAST SUPPLEMENT [Concomitant]
     Active Substance: DIETARY SUPPLEMENT
  16. MULTI VITAMIN [Concomitant]
     Active Substance: VITAMINS
  17. PREVAGEN [Concomitant]
     Active Substance: DIETARY SUPPLEMENT
  18. GARLIC. [Concomitant]
     Active Substance: GARLIC
  19. ASHWAGANDHA [Concomitant]
     Active Substance: HERBALS
  20. CRANBERRY. [Concomitant]
     Active Substance: CRANBERRY

REACTIONS (13)
  - Ear congestion [None]
  - Chromaturia [None]
  - Eructation [None]
  - Nightmare [None]
  - Haematuria [None]
  - Paranasal sinus hypersecretion [None]
  - Headache [None]
  - Urine odour abnormal [None]
  - Hiccups [None]
  - Lymphadenopathy [None]
  - Urinary tract infection [None]
  - Skin exfoliation [None]
  - Pain in extremity [None]

NARRATIVE: CASE EVENT DATE: 20200201
